FAERS Safety Report 9230507 (Version 2)
Quarter: 2013Q2

REPORT INFORMATION
  Report Type: Spontaneous
  Country: AU (occurrence: AU)
  Receive Date: 20130415
  Receipt Date: 20130503
  Transmission Date: 20140414
  Serious: Yes (Other)
  Sender: FDA-Public Use
  Company Number: AU-PFIZER INC-2013095075

PATIENT
  Sex: Female

DRUGS (1)
  1. CHLOROMYCETIN [Suspect]
     Dosage: 2 DROPS, 3X/DAY
     Route: 047
     Dates: start: 20130104, end: 20130328

REACTIONS (3)
  - Incorrect route of drug administration [Unknown]
  - Glaucoma [Not Recovered/Not Resolved]
  - Wrong drug administered [None]
